FAERS Safety Report 7796185-X (Version None)
Quarter: 2011Q4

REPORT INFORMATION
  Report Type: 
  Country: None (occurrence: None)
  Receive Date: 20111004
  Receipt Date: 20110919
  Transmission Date: 20120403
  Serious: Yes (Death)
  Sender: FDA-Public Use
  Company Number: HK-WATSON-2011-15734

PATIENT
  Age: 37 Year
  Sex: Female

DRUGS (2)
  1. HYDROXYCHLOROQUINE SULFATE [Suspect]
     Indication: PRODUCT USED FOR UNKNOWN INDICATION
     Dosage: 200 MG X 30 TABLETS, SINGLE DOSE
     Route: 065
  2. CHLOROQUINE [Suspect]
     Indication: PRODUCT USED FOR UNKNOWN INDICATION
     Dosage: 250 MG X 25 TABLETS (SINGLE DOSE)
     Route: 065

REACTIONS (6)
  - COMPLETED SUICIDE [None]
  - CARDIAC ARREST [None]
  - TORSADE DE POINTES [None]
  - HYPOKALAEMIA [None]
  - OVERDOSE [None]
  - VENTRICULAR FIBRILLATION [None]
